FAERS Safety Report 4462167-9 (Version None)
Quarter: 2004Q3

REPORT INFORMATION
  Report Type: 
  Country: None (occurrence: None)
  Receive Date: 20040927
  Receipt Date: 20040927
  Transmission Date: 20050211
  Serious: Yes (Hospitalization)
  Sender: FDA-Public Use
  Company Number: None

PATIENT
  Age: 76 Year
  Sex: Female
  Weight: 54.8 kg

DRUGS (2)
  1. PEGFILGRASTIM [Suspect]
     Indication: METASTASES TO LIVER
  2. PEGFILGRASTIM [Suspect]
     Indication: SMALL INTESTINE CARCINOMA METASTATIC

REACTIONS (1)
  - LEUKOCYTOSIS [None]
